FAERS Safety Report 10639802 (Version 1)
Quarter: 2014Q4

REPORT INFORMATION
  Report Type: Spontaneous
  Country: US (occurrence: None)
  Receive Date: 20141205
  Receipt Date: 20141205
  Transmission Date: 20150529
  Serious: No
  Sender: FDA-Public Use
  Company Number: None

PATIENT
  Age: 41 Year
  Sex: Male
  Weight: 70.31 kg

DRUGS (1)
  1. LANSOPRAZOLE 30MG SANDOZ [Suspect]
     Active Substance: LANSOPRAZOLE
     Indication: GASTROOESOPHAGEAL REFLUX DISEASE

REACTIONS (7)
  - Decreased interest [None]
  - Depression [None]
  - Dyspepsia [None]
  - Migraine [None]
  - Palpitations [None]
  - Gallbladder disorder [None]
  - Anger [None]

NARRATIVE: CASE EVENT DATE: 20131115
